FAERS Safety Report 24081666 (Version 1)
Quarter: 2024Q3

REPORT INFORMATION
  Report Type: Spontaneous
  Country: PT (occurrence: PT)
  Receive Date: 20240712
  Receipt Date: 20240712
  Transmission Date: 20241017
  Serious: Yes (Life-Threatening, Hospitalization)
  Sender: STRIDES
  Company Number: None

PATIENT
  Age: 8 Decade
  Sex: Male

DRUGS (17)
  1. FUROSEMIDE [Interacting]
     Active Substance: FUROSEMIDE
     Indication: Weight decreased
     Dosage: UNK, QD (PER DAY), COMPOUNDED TABLET , TABLET,  INGESTION
     Route: 048
  2. TRAZODONE [Interacting]
     Active Substance: TRAZODONE HYDROCHLORIDE
     Indication: Product used for unknown indication
     Dosage: 300 MILLIGRAM, QD (PER DAY)
     Route: 065
  3. BUPROPION [Interacting]
     Active Substance: BUPROPION
     Indication: Weight decreased
     Dosage: UNK, QD (PER DAY), COMPOUNDED TABLET , TABLET,  INGESTION
     Route: 048
  4. ATORVASTATIN [Interacting]
     Active Substance: ATORVASTATIN
     Indication: Product used for unknown indication
     Dosage: 40 MILLIGRAM, QD (PER DAY)
     Route: 065
  5. PHENOLPHTHALEIN [Interacting]
     Active Substance: PHENOLPHTHALEIN
     Indication: Weight decreased
     Dosage: UNK, QD (PER DAY),  COMPOUNDED TABLET , TABLET
     Route: 048
  6. CHLORDIAZEPOXIDE [Interacting]
     Active Substance: CHLORDIAZEPOXIDE
     Indication: Weight decreased
     Dosage: UNK, QD (PER DAY), COMPOUNDED TABLET , TABLET,  INGESTION
     Route: 048
  7. LORAZEPAM [Interacting]
     Active Substance: LORAZEPAM
     Indication: Product used for unknown indication
     Dosage: 2.5 MILLIGRAM, QD (PER DAY), 0.137 MG
     Route: 065
  8. HERBALS [Interacting]
     Active Substance: HERBALS
     Indication: Weight decreased
     Dosage: UNK, QD (PER DAY), COMPOUNDED TABLET , TABLET,  INGESTION
     Route: 048
  9. HERBALS [Interacting]
     Active Substance: HERBALS
     Indication: Weight decreased
     Dosage: UNK, QD (PER DAY), COMPOUNDED TABLET , TABLET,  INGESTION
     Route: 048
  10. QUETIAPINE [Interacting]
     Active Substance: QUETIAPINE
     Indication: Product used for unknown indication
     Dosage: 100 MILLIGRAM, QD (PER DAY)
     Route: 065
  11. CANDESARTAN [Concomitant]
     Active Substance: CANDESARTAN
     Indication: Product used for unknown indication
     Dosage: 8 MILLIGRAM, QD (PER DAY)
     Route: 065
  12. LEVOTHYROXINE [Concomitant]
     Active Substance: LEVOTHYROXINE\LEVOTHYROXINE SODIUM
     Indication: Product used for unknown indication
     Dosage: 0.137 MILLIGRAM, QD (PER DAY)
     Route: 065
  13. METFORMIN [Concomitant]
     Active Substance: METFORMIN HYDROCHLORIDE
     Indication: Product used for unknown indication
     Dosage: 700 MILLIGRAM, QD (PER DAY)
     Route: 065
  14. ASPIRIN [Concomitant]
     Active Substance: ASPIRIN
     Indication: Product used for unknown indication
     Dosage: 100 MILLIGRAM, QD (PER DAY)
     Route: 065
  15. LIRAGLUTIDE [Concomitant]
     Active Substance: LIRAGLUTIDE
     Indication: Product used for unknown indication
     Dosage: 0.6 MILLIGRAM, QD (PER DAY)
     Route: 065
  16. METFORMIN [Concomitant]
     Active Substance: METFORMIN HYDROCHLORIDE
     Indication: Weight decreased
     Dosage: UNK, QD (PER DAY), COMPOUNDED TABLET , TABLET,  INGESTION
     Route: 048
  17. AMLODIPINE [Concomitant]
     Active Substance: AMLODIPINE BESYLATE
     Indication: Product used for unknown indication
     Dosage: 5 MILLIGRAM, QD (PER DAY)
     Route: 065

REACTIONS (5)
  - Rhabdomyolysis [Recovered/Resolved]
  - Hypovolaemia [Recovered/Resolved]
  - Drug interaction [Recovered/Resolved]
  - Encephalopathy [Recovered/Resolved]
  - Acute kidney injury [Recovered/Resolved]
